FAERS Safety Report 5237150-6 (Version None)
Quarter: 2007Q1

REPORT INFORMATION
  Report Type: 
  Country: None (occurrence: None)
  Receive Date: 20070213
  Receipt Date: 20070206
  Transmission Date: 20070707
  Serious: Yes (Hospitalization)
  Sender: FDA-Public Use
  Company Number: FR-GLAXOSMITHKLINE-B0456480A

PATIENT
  Age: 72 Year
  Sex: Male
  Weight: 65 kg

DRUGS (4)
  1. ARIXTRA [Suspect]
     Indication: PULMONARY EMBOLISM
     Dosage: 7.5MG PER DAY
     Route: 058
     Dates: start: 20061215, end: 20070115
  2. OMEPRAZOLE [Concomitant]
     Dosage: 40MG PER DAY
  3. FUROSEMIDE [Concomitant]
     Dosage: 40MG PER DAY
  4. AMIODARONE HCL [Concomitant]

REACTIONS (8)
  - CARDIAC FAILURE [None]
  - HAEMATURIA [None]
  - HAEMOGLOBIN DECREASED [None]
  - HEART RATE INCREASED [None]
  - OEDEMA PERIPHERAL [None]
  - OVERDOSE [None]
  - PURULENT DISCHARGE [None]
  - URINARY RETENTION [None]
